FAERS Safety Report 11345411 (Version 1)
Quarter: 2015Q3

REPORT INFORMATION
  Report Type: Spontaneous
  Country: DE (occurrence: DE)
  Receive Date: 20150806
  Receipt Date: 20150806
  Transmission Date: 20151125
  Serious: Yes (Other)
  Sender: FDA-Public Use
  Company Number: PHHY2015DE092748

PATIENT
  Sex: Male

DRUGS (2)
  1. VOLTAREN RESINAT [Suspect]
     Active Substance: DICLOFENAC
     Indication: BACK PAIN
     Dosage: 75 MG, BID
     Route: 065
     Dates: start: 20150718, end: 20150721
  2. VOLTAREN [Suspect]
     Active Substance: DICLOFENAC SODIUM
     Indication: BACK PAIN
     Dosage: 50 MG, UNK
     Route: 065
     Dates: start: 20150721, end: 20150724

REACTIONS (3)
  - Alanine aminotransferase increased [Unknown]
  - Gamma-glutamyltransferase increased [Unknown]
  - Pain [Recovered/Resolved]

NARRATIVE: CASE EVENT DATE: 20150721
